FAERS Safety Report 20750227 (Version 2)
Quarter: 2022Q2

REPORT INFORMATION
  Report Type: Report from Study
  Country: US (occurrence: US)
  Receive Date: 20220426
  Receipt Date: 20220525
  Transmission Date: 20220721
  Serious: Yes (Other)
  Sender: FDA-Public Use
  Company Number: US-BRISTOL-MYERS SQUIBB COMPANY-2022-023310

PATIENT
  Age: 86 Year
  Sex: Male
  Weight: 88.45 kg

DRUGS (3)
  1. ELIQUIS [Suspect]
     Active Substance: APIXABAN
     Indication: Thrombosis prophylaxis
  2. ELIQUIS [Suspect]
     Active Substance: APIXABAN
     Route: 065
     Dates: start: 20211218, end: 20220318
  3. MAGNESIUM OXIDE [Concomitant]
     Active Substance: MAGNESIUM OXIDE
     Indication: Product used for unknown indication

REACTIONS (10)
  - Feeling abnormal [Unknown]
  - Gait disturbance [Unknown]
  - Epistaxis [Unknown]
  - Haemorrhage [Unknown]
  - Mouth haemorrhage [Unknown]
  - Dizziness [Unknown]
  - Contusion [Unknown]
  - Heavy menstrual bleeding [Unknown]
  - Haemorrhage [Unknown]
  - Nausea [Unknown]
